FAERS Safety Report 7044065-X (Version None)
Quarter: 2010Q4

REPORT INFORMATION
  Report Type: 
  Country: None (occurrence: None)
  Receive Date: 20101013
  Receipt Date: 20101007
  Transmission Date: 20110411
  Serious: Yes (Hospitalization)
  Sender: FDA-Public Use
  Company Number: FR-PFIZER INC-2010127351

PATIENT
  Age: 62 Year
  Sex: Male

DRUGS (2)
  1. SALAZOPYRINE [Suspect]
     Dosage: UNK
     Dates: end: 19930101
  2. SALAZOPYRINE [Suspect]
     Dosage: UNK
     Dates: start: 20030101

REACTIONS (1)
  - NEPHROLITHIASIS [None]
